FAERS Safety Report 5346364-6 (Version None)
Quarter: 2007Q2

REPORT INFORMATION
  Report Type: 
  Country: None (occurrence: None)
  Receive Date: 20070605
  Receipt Date: 20070601
  Transmission Date: 20071010
  Serious: Yes (Disabling)
  Sender: FDA-Public Use
  Company Number: AU-BOEHRINGER INGELHEIM PHARMACEUTICALS, INC.-2007-BP-07504AU

PATIENT
  Age: 35 Year
  Sex: Female

DRUGS (4)
  1. MICARDIS HCT [Suspect]
     Route: 048
  2. PREDNISOLONE [Suspect]
     Route: 048
  3. IMURAN [Suspect]
     Route: 048
  4. CALTRATE (CALCIUM CARBONATE) [Concomitant]
     Route: 048

REACTIONS (2)
  - COGNITIVE DISORDER [None]
  - SYSTEMIC LUPUS ERYTHEMATOSUS [None]
